FAERS Safety Report 4509134-4 (Version None)
Quarter: 2005Q1

REPORT INFORMATION
  Report Type: 
  Country: None (occurrence: None)
  Receive Date: 20041025
  Receipt Date: 20040806
  Transmission Date: 20050727
  Serious: Yes (Hospitalization)
  Sender: FDA-Public Use
  Company Number: US-JNJFOC-20040802699

PATIENT
  Age: 56 Year
  Sex: Female

DRUGS (6)
  1. INFLIXIMAB (INFLIXIMAB, RECOMBINANT) LYOPHILIZED POWDER [Suspect]
     Indication: RHEUMATOID ARTHRITIS
     Dosage: INTRAVENOUS
     Route: 042
     Dates: start: 20000519, end: 20030701
  2. ARAVA [Concomitant]
  3. DARVOCET [Concomitant]
  4. PREDNISONE [Concomitant]
  5. ACCUPRIL (QUINPARIL HYDROCHLORIDE) [Concomitant]
  6. OSCAL (CALCIUM CARBONATE) [Concomitant]

REACTIONS (1)
  - CELLULITIS [None]
